FAERS Safety Report 7804676-8 (Version None)
Quarter: 2011Q4

REPORT INFORMATION
  Report Type: 
  Country: None (occurrence: None)
  Receive Date: 20111010
  Receipt Date: 20110927
  Transmission Date: 20120403
  Serious: Yes (Other)
  Sender: FDA-Public Use
  Company Number: DE-TEVA-303354GER

PATIENT
  Sex: Male
  Weight: 80 kg

DRUGS (1)
  1. COPAXONE [Suspect]
     Indication: MULTIPLE SCLEROSIS
     Dosage: 20 MILLIGRAM;
     Route: 058
     Dates: start: 20091012, end: 20110916

REACTIONS (4)
  - INJECTION SITE ERYTHEMA [None]
  - FAT NECROSIS [None]
  - INJECTION SITE INDURATION [None]
  - HAEMATOMA [None]
